FAERS Safety Report 9859180 (Version 2)
Quarter: 2014Q1

REPORT INFORMATION
  Report Type: Spontaneous
  Country: CA (occurrence: CA)
  Receive Date: 20140131
  Receipt Date: 20140221
  Transmission Date: 20141002
  Serious: Yes (Other)
  Sender: FDA-Public Use
  Company Number: CA-FRI-1000053166

PATIENT
  Age: 45 Year
  Sex: Male
  Weight: 125 kg

DRUGS (6)
  1. BYSTOLIC [Suspect]
     Dosage: 5 MG
     Dates: start: 201309
  2. DEXAMETHASONE [Suspect]
     Indication: ASTHMATIC CRISIS
     Dosage: 4 MG
     Route: 048
     Dates: start: 20140122, end: 20140125
  3. COVERSYL [Concomitant]
     Dosage: 8 MG
     Route: 048
  4. VITAMIN B 12 [Concomitant]
     Dosage: 1000 MCG
     Route: 048
  5. SYMBICORT [Concomitant]
     Indication: ASTHMA
     Dosage: 2 PUFFS BID
  6. SANDOSTATIN [Concomitant]
     Indication: ACROMEGALY
     Dosage: 20 MG ONCE/ MONTH

REACTIONS (2)
  - Bradycardia [Recovered/Resolved]
  - Drug interaction [Recovered/Resolved]
